FAERS Safety Report 10845813 (Version 1)
Quarter: 2015Q1

REPORT INFORMATION
  Report Type: Spontaneous
  Country: US (occurrence: US)
  Receive Date: 20150220
  Receipt Date: 20150220
  Transmission Date: 20150721
  Serious: No
  Sender: FDA-Public Use
  Company Number: US-ABBVIE-14P-163-1314266-00

PATIENT

DRUGS (1)
  1. HUMIRA [Suspect]
     Active Substance: ADALIMUMAB
     Indication: CROHN^S DISEASE
     Route: 065
     Dates: start: 201310

REACTIONS (6)
  - Pain [Unknown]
  - Clumsiness [Unknown]
  - Paraesthesia [Unknown]
  - Crohn^s disease [Unknown]
  - Neuropathy peripheral [Unknown]
  - Hypoaesthesia [Unknown]
